FAERS Safety Report 15643912 (Version 1)
Quarter: 2018Q4

REPORT INFORMATION
  Report Type: Spontaneous
  Country: FR (occurrence: FR)
  Receive Date: 20181121
  Receipt Date: 20181121
  Transmission Date: 20190205
  Serious: Yes (Death, Other)
  Sender: FDA-Public Use
  Company Number: FR-SA-2018SA319902

PATIENT
  Age: 59 Year
  Sex: Male

DRUGS (1)
  1. JEVTANA [Suspect]
     Active Substance: CABAZITAXEL
     Indication: PROSTATE CANCER METASTATIC
     Dosage: 22 MG/M2, UNK
     Route: 065

REACTIONS (3)
  - Lung infection [Fatal]
  - Sepsis [Fatal]
  - Aplasia [Fatal]

NARRATIVE: CASE EVENT DATE: 20180619
